FAERS Safety Report 22229564 (Version 2)
Quarter: 2023Q2

REPORT INFORMATION
  Report Type: Spontaneous
  Country: US (occurrence: US)
  Receive Date: 20230419
  Receipt Date: 20230630
  Transmission Date: 20230721
  Serious: No
  Sender: FDA-Public Use
  Company Number: US-VERTEX PHARMACEUTICALS-2023-005369

PATIENT

DRUGS (1)
  1. TRIKAFTA [Suspect]
     Active Substance: ELEXACAFTOR\IVACAFTOR\TEZACAFTOR
     Indication: Cystic fibrosis
     Dosage: UNK FREQ
     Route: 048

REACTIONS (7)
  - Mental disorder [Not Recovered/Not Resolved]
  - Aphasia [Unknown]
  - Language disorder [Not Recovered/Not Resolved]
  - Brain fog [Unknown]
  - Anxiety [Recovering/Resolving]
  - Frustration tolerance decreased [Unknown]
  - General physical health deterioration [Not Recovered/Not Resolved]
